FAERS Safety Report 8782252 (Version 1)
Quarter: 2012Q4

REPORT INFORMATION
  Report Type: 
  Country: US (occurrence: US)
  Receive Date: 20120913
  Receipt Date: 20120913
  Transmission Date: 20130627
  Serious: No
  Sender: FDA-Public Use
  Company Number: US-ASTRAZENECA-2012SE21472

PATIENT
  Age: 55 Year
  Sex: Female

DRUGS (1)
  1. SEROQUEL XR [Suspect]
     Route: 048

REACTIONS (4)
  - Migraine [Unknown]
  - Oropharyngeal pain [Unknown]
  - Throat tightness [Unknown]
  - Dyspnoea [Unknown]
